FAERS Safety Report 11771917 (Version 3)
Quarter: 2015Q4

REPORT INFORMATION
  Report Type: Spontaneous
  Country: IT (occurrence: IT)
  Receive Date: 20151124
  Receipt Date: 20151222
  Transmission Date: 20160304
  Serious: Yes (Other)
  Sender: FDA-Public Use
  Company Number: IT-WATSON-2015-25198

PATIENT
  Age: 42 Year
  Sex: Female

DRUGS (3)
  1. LEVOFLOXACIN (UNKNOWN) [Suspect]
     Active Substance: LEVOFLOXACIN
     Indication: BRONCHITIS
     Dosage: 500 MG, DAILY
     Route: 048
     Dates: start: 20151005, end: 20151009
  2. PREDNISONE. [Concomitant]
     Active Substance: PREDNISONE
     Indication: PRODUCT USED FOR UNKNOWN INDICATION
     Dosage: 25 MG, UNK
     Route: 048
  3. CEFIXIME (UNKNOWN) [Suspect]
     Active Substance: CEFIXIME
     Indication: BRONCHITIS
     Dosage: 400 MG, DAILY
     Route: 048
     Dates: start: 20151005, end: 20151009

REACTIONS (1)
  - Asthenia [Recovering/Resolving]

NARRATIVE: CASE EVENT DATE: 20151010
